FAERS Safety Report 8543945-3 (Version None)
Quarter: 2012Q3

REPORT INFORMATION
  Report Type: 
  Country: None (occurrence: None)
  Receive Date: 20120717
  Receipt Date: 20120703
  Transmission Date: 20120928
  Serious: Yes (Other)
  Sender: FDA-Public Use
  Company Number: 20120440

PATIENT
  Age: 53 Year
  Sex: Female

DRUGS (1)
  1. VENOFER [Suspect]
     Indication: ANAEMIA
     Dosage: 200 MG WEEKLY FOR 6 WEEKS INTRAVENOUS
     Route: 042
     Dates: start: 20120524, end: 20120601

REACTIONS (8)
  - LIP SWELLING [None]
  - HEPATIC SIDEROSIS [None]
  - SPLEEN DISORDER [None]
  - OFF LABEL USE [None]
  - IRON OVERLOAD [None]
  - DIARRHOEA [None]
  - CHROMATURIA [None]
  - ABDOMINAL PAIN [None]
